FAERS Safety Report 9308310 (Version 3)
Quarter: 2013Q3

REPORT INFORMATION
  Report Type: Report from Study
  Country: JP (occurrence: JP)
  Receive Date: 20130524
  Receipt Date: 20130808
  Transmission Date: 20140515
  Serious: Yes (Death)
  Sender: FDA-Public Use
  Company Number: JP-AMGEN-JPNCT2013037132

PATIENT
  Age: 81 Year
  Sex: Female
  Weight: 46 kg

DRUGS (15)
  1. ROMIPLATE [Suspect]
     Indication: IMMUNE THROMBOCYTOPENIC PURPURA
     Dosage: 5 MUG/KG, QWK
     Route: 058
     Dates: start: 20130228, end: 20130327
  2. ROMIPLATE [Suspect]
     Dosage: 2 MUG/KG, QD
     Route: 058
     Dates: start: 20130403, end: 20130403
  3. ROMIPLATE [Suspect]
     Dosage: 5 MUG/KG, QWK
     Route: 058
     Dates: start: 20130410, end: 20130501
  4. METHYCOBAL [Concomitant]
     Indication: NEUROPATHY PERIPHERAL
     Dosage: 1500 MUG/KG, UNK
     Route: 048
     Dates: end: 20130425
  5. ARTIST [Concomitant]
     Indication: CARDIAC FAILURE
     Dosage: UNK
     Route: 048
  6. BLOPRESS [Concomitant]
     Indication: HYPERTENSION
     Dosage: UNK
     Route: 048
  7. ADALAT CR [Concomitant]
     Indication: HYPERTENSION
     Dosage: UNK
     Route: 048
  8. METGLUCO [Concomitant]
     Indication: DIABETES MELLITUS
     Dosage: UNK
     Route: 048
  9. NESINA [Concomitant]
     Indication: DIABETES MELLITUS
     Dosage: UNK
     Route: 048
  10. TAKEPRON [Concomitant]
     Indication: GASTRIC ULCER
     Dosage: UNK
     Route: 048
  11. DIGOXIN [Concomitant]
     Indication: ATRIAL FIBRILLATION
     Dosage: UNK
     Route: 065
  12. HEPARIN [Concomitant]
     Indication: THROMBOSIS
     Dosage: UNK
     Route: 065
  13. ALYPROST [Concomitant]
     Indication: PERIPHERAL ARTERIAL OCCLUSIVE DISEASE
     Dosage: UNK
     Route: 065
  14. VENOGLOBULIN-IH [Concomitant]
     Dosage: UNK
     Route: 065
  15. PANTOL [Concomitant]
     Indication: CONSTIPATION
     Dosage: UNK
     Route: 065

REACTIONS (2)
  - Disseminated intravascular coagulation [Fatal]
  - Coronary artery occlusion [Fatal]
